FAERS Safety Report 12932957 (Version 2)
Quarter: 2016Q4

REPORT INFORMATION
  Report Type: Spontaneous
  Country: JP (occurrence: JP)
  Receive Date: 20161111
  Receipt Date: 20161227
  Transmission Date: 20170207
  Serious: Yes (Other)
  Sender: FDA-Public Use
  Company Number: JP-BAYER-2016-211638

PATIENT
  Age: 37 Year
  Sex: Female

DRUGS (3)
  1. ACETYLSALICYLIC ACID({=100 MG) [Suspect]
     Active Substance: ASPIRIN
     Indication: PROPHYLAXIS OF ABORTION
     Dosage: 100 MG, QD
     Route: 048
     Dates: start: 20141114, end: 20160907
  2. HEPARIN [Concomitant]
     Active Substance: HEPARIN SODIUM
     Indication: ANTICOAGULANT THERAPY
  3. HEPARIN [Concomitant]
     Active Substance: HEPARIN SODIUM
     Indication: PROPHYLAXIS OF ABORTION

REACTIONS (3)
  - Off label use [None]
  - Maternal exposure during pregnancy [Recovered/Resolved]
  - Abortion missed [Recovered/Resolved]

NARRATIVE: CASE EVENT DATE: 20150615
